FAERS Safety Report 14977189 (Version 1)
Quarter: 2018Q2

REPORT INFORMATION
  Report Type: Spontaneous
  Country: NL (occurrence: NL)
  Receive Date: 20180606
  Receipt Date: 20180606
  Transmission Date: 20180711
  Serious: Yes (Hospitalization)
  Sender: FDA-Public Use
  Company Number: NL-TEVA-2018-NL-902489

PATIENT
  Age: 67 Year
  Sex: Male
  Weight: 86 kg

DRUGS (9)
  1. FOLIUMZUUR [Concomitant]
     Active Substance: FOLIC ACID
     Route: 065
  2. OXIS INHALER [Concomitant]
     Route: 065
  3. PANTAPROZOL [Concomitant]
     Route: 065
  4. CETIRIZINE [Concomitant]
     Active Substance: CETIRIZINE HYDROCHLORIDE
     Route: 065
  5. PREDNISOLON (PREDNISOLONE) [Suspect]
     Active Substance: PREDNISOLONE
     Indication: ASTHMA
     Dosage: 7.5 MILLIGRAM DAILY;
     Route: 065
     Dates: start: 2016
  6. CALCIUM [Concomitant]
     Active Substance: CALCIUM
     Route: 065
  7. MIRTAZAPINE. [Concomitant]
     Active Substance: MIRTAZAPINE
     Route: 065
  8. ALVESCO [Concomitant]
     Active Substance: CICLESONIDE
     Route: 065
  9. MONTELUKAST [Concomitant]
     Active Substance: MONTELUKAST SODIUM
     Route: 065

REACTIONS (2)
  - Feeling hot [Not Recovered/Not Resolved]
  - Erythema [Not Recovered/Not Resolved]

NARRATIVE: CASE EVENT DATE: 201706
